FAERS Safety Report 6086600-4 (Version None)
Quarter: 2009Q1

REPORT INFORMATION
  Report Type: 
  Country: None (occurrence: None)
  Receive Date: 20090223
  Receipt Date: 20090211
  Transmission Date: 20090719
  Serious: Yes (Hospitalization)
  Sender: FDA-Public Use
  Company Number: FR-PFIZER INC-2009169863

PATIENT

DRUGS (6)
  1. TRIFLUCAN [Suspect]
     Indication: STOMATITIS
     Dosage: 50 MG, 1X/DAY
     Route: 048
     Dates: start: 20090102, end: 20090104
  2. CLAMOXYL [Suspect]
     Indication: BRONCHOPNEUMOPATHY
     Dosage: 1 G, 3X/DAY
     Route: 048
     Dates: start: 20081220, end: 20090105
  3. MEMANTINE HYDROCHLORIDE [Concomitant]
     Route: 048
     Dates: start: 20081216
  4. ATENOLOL [Concomitant]
     Route: 048
  5. FUROSEMIDE [Concomitant]
     Route: 048
  6. KARDEGIC [Concomitant]
     Route: 048

REACTIONS (1)
  - VASCULAR PURPURA [None]
